FAERS Safety Report 17296458 (Version 1)
Quarter: 2020Q1

REPORT INFORMATION
  Report Type: Spontaneous
  Country: FR (occurrence: FR)
  Receive Date: 20200122
  Receipt Date: 20200122
  Transmission Date: 20200409
  Serious: Yes (Death)
  Sender: FDA-Public Use
  Company Number: FR-TEVA-2020-FR-1171136

PATIENT
  Age: 25 Year
  Sex: Male

DRUGS (5)
  1. ALCOOL [Suspect]
     Active Substance: ALCOHOL
     Route: 065
     Dates: end: 2018
  2. COCAINE [Concomitant]
     Active Substance: COCAINE
     Route: 065
     Dates: end: 2018
  3. TRAMADOL (CHLORHYDRATE DE) [Suspect]
     Active Substance: TRAMADOL HYDROCHLORIDE
     Route: 065
     Dates: end: 2018
  4. METHADONE [Suspect]
     Active Substance: METHADONE HYDROCHLORIDE
     Route: 065
     Dates: end: 2018
  5. CANNABIS [Concomitant]
     Active Substance: CANNABIS SATIVA SUBSP. INDICA TOP
     Route: 065
     Dates: end: 2018

REACTIONS (2)
  - Asphyxia [Fatal]
  - Drug abuse [Fatal]
